FAERS Safety Report 12870554 (Version 1)
Quarter: 2016Q4

REPORT INFORMATION
  Report Type: Report from Study
  Country: US (occurrence: US)
  Receive Date: 20161021
  Receipt Date: 20161021
  Transmission Date: 20170207
  Serious: Yes (Death, Other)
  Sender: FDA-Public Use
  Company Number: US-ASTRAZENECA-2015SF30565

PATIENT
  Age: 30298 Day
  Sex: Female

DRUGS (2)
  1. TAGRISSO [Suspect]
     Active Substance: OSIMERTINIB
     Indication: LUNG CARCINOMA CELL TYPE UNSPECIFIED STAGE I
     Route: 048
     Dates: start: 20151128
  2. UNK [Concomitant]
     Active Substance: UNSPECIFIED INGREDIENT

REACTIONS (16)
  - Feeding disorder [Unknown]
  - Throat irritation [Unknown]
  - Gastrooesophageal reflux disease [Unknown]
  - Contusion [Unknown]
  - Nausea [Unknown]
  - Incoherent [Unknown]
  - Nodule [Unknown]
  - Malaise [Unknown]
  - Vomiting [Unknown]
  - Amnesia [Unknown]
  - Death [Fatal]
  - Epistaxis [Unknown]
  - Weight decreased [Unknown]
  - Hypersensitivity [Unknown]
  - Decreased appetite [Unknown]
  - Dysphonia [Unknown]

NARRATIVE: CASE EVENT DATE: 20151224
